FAERS Safety Report 16455926 (Version 3)
Quarter: 2019Q3

REPORT INFORMATION
  Report Type: Spontaneous
  Country: JP (occurrence: JP)
  Receive Date: 20190619
  Receipt Date: 20190813
  Transmission Date: 20191004
  Serious: No
  Sender: FDA-Public Use
  Company Number: JP-AMGEN-JPNSP2019098360

PATIENT
  Age: 46 Year
  Sex: Female
  Weight: 53 kg

DRUGS (21)
  1. 5-FU [FLUOROURACIL] [Concomitant]
     Active Substance: FLUOROURACIL
     Indication: METASTASES TO LIVER
     Dosage: 2600 MILLIGRAM, Q2WK
     Route: 041
     Dates: start: 20160512, end: 20170325
  2. VECTIBIX [Suspect]
     Active Substance: PANITUMUMAB
     Indication: METASTASES TO LUNG
     Dosage: 320 MILLIGRAM, Q2WK
     Route: 041
     Dates: start: 20181010, end: 20181209
  3. CAMPTO [Concomitant]
     Active Substance: IRINOTECAN
     Indication: METASTASES TO LUNG
     Dosage: 140 MILLIGRAM, Q2WK
     Route: 041
     Dates: start: 20190415
  4. VECTIBIX [Suspect]
     Active Substance: PANITUMUMAB
     Indication: RECTAL CANCER
     Dosage: 320 MILLIGRAM, Q2WK
     Route: 041
     Dates: start: 20160613, end: 20170325
  5. ELPLAT [Concomitant]
     Active Substance: OXALIPLATIN
     Indication: RECTAL CANCER
     Dosage: 130 MILLIGRAM, Q2WK
     Route: 041
     Dates: start: 20160512, end: 20161218
  6. ELPLAT [Concomitant]
     Active Substance: OXALIPLATIN
     Indication: METASTASES TO LIVER
     Dosage: UNK
  7. VECTIBIX [Suspect]
     Active Substance: PANITUMUMAB
     Indication: METASTASES TO LIVER
     Dosage: 320 MILLIGRAM, Q2WK
     Route: 041
     Dates: start: 20190415
  8. 5-FU [FLUOROURACIL] [Concomitant]
     Active Substance: FLUOROURACIL
     Indication: METASTASES TO LUNG
     Dosage: 2600 MILLIGRAM, Q2WK
     Route: 040
     Dates: start: 20170801, end: 20180121
  9. 5-FU [FLUOROURACIL] [Concomitant]
     Active Substance: FLUOROURACIL
     Dosage: 430 MILLIGRAM, Q2WK
     Route: 041
     Dates: start: 20170801, end: 20180121
  10. CALCIUM LEVOFOLINATE [Concomitant]
     Active Substance: LEVOLEUCOVORIN CALCIUM
     Indication: RECTAL CANCER
     Dosage: 300 MILLIGRAM, Q2WK
     Route: 041
     Dates: start: 20160512, end: 20170325
  11. CAMPTO [Concomitant]
     Active Substance: IRINOTECAN
     Indication: RECTAL CANCER
     Dosage: 140 MILLIGRAM, Q2WK
     Route: 041
     Dates: start: 20170801, end: 20180121
  12. CAMPTO [Concomitant]
     Active Substance: IRINOTECAN
     Indication: METASTASES TO LIVER
     Dosage: 140 MILLIGRAM, Q2WK
     Route: 041
     Dates: start: 20181010, end: 20181209
  13. 5-FU [FLUOROURACIL] [Concomitant]
     Active Substance: FLUOROURACIL
     Indication: RECTAL CANCER
     Dosage: 430 MILLIGRAM, Q2WK
     Route: 040
     Dates: start: 20160512, end: 20170325
  14. 5-FU [FLUOROURACIL] [Concomitant]
     Active Substance: FLUOROURACIL
     Dosage: 430 MILLIGRAM, Q2WK
     Route: 041
     Dates: start: 20181209
  15. CALCIUM LEVOFOLINATE [Concomitant]
     Active Substance: LEVOLEUCOVORIN CALCIUM
     Indication: METASTASES TO LUNG
     Dosage: 300 MILLIGRAM, Q2WK
     Route: 041
     Dates: start: 20181010, end: 20181209
  16. CALCIUM LEVOFOLINATE [Concomitant]
     Active Substance: LEVOLEUCOVORIN CALCIUM
     Dosage: 300 MILLIGRAM, Q2WK
     Route: 041
     Dates: start: 20190415
  17. ELPLAT [Concomitant]
     Active Substance: OXALIPLATIN
     Indication: METASTASES TO LUNG
     Dosage: UNK
  18. 5-FU [FLUOROURACIL] [Concomitant]
     Active Substance: FLUOROURACIL
     Dosage: 2600 MILLIGRAM, Q2WK
     Route: 040
     Dates: start: 20190415
  19. CALCIUM LEVOFOLINATE [Concomitant]
     Active Substance: LEVOLEUCOVORIN CALCIUM
     Indication: METASTASES TO LIVER
     Dosage: 300 MILLIGRAM, Q2WK
     Route: 041
     Dates: start: 20170801, end: 20180121
  20. 5-FU [FLUOROURACIL] [Concomitant]
     Active Substance: FLUOROURACIL
     Dosage: 2600 MILLIGRAM, Q2WK
     Route: 040
     Dates: start: 20181010, end: 20181209
  21. 5-FU [FLUOROURACIL] [Concomitant]
     Active Substance: FLUOROURACIL
     Dosage: 430 MILLIGRAM, Q2WK
     Route: 041
     Dates: start: 20190415

REACTIONS (1)
  - Dermatitis acneiform [Recovering/Resolving]

NARRATIVE: CASE EVENT DATE: 20160627
